FAERS Safety Report 9658032 (Version 3)
Quarter: 2014Q1

REPORT INFORMATION
  Report Type: Spontaneous
  Country: BR (occurrence: BR)
  Receive Date: 20131030
  Receipt Date: 20140328
  Transmission Date: 20141002
  Serious: Yes (Hospitalization, Other)
  Sender: FDA-Public Use
  Company Number: BR-ELI_LILLY_AND_COMPANY-BR201310007283

PATIENT
  Sex: Female
  Weight: 74 kg

DRUGS (4)
  1. HUMULIN N [Suspect]
     Indication: TYPE 2 DIABETES MELLITUS
     Dosage: 18 IU, EACH MORNING
     Route: 058
     Dates: start: 1998
  2. HUMULIN N [Suspect]
     Dosage: 12 IU, EACH EVENING
     Route: 058
     Dates: start: 1997
  3. HUMULIN R [Suspect]
     Indication: TYPE 2 DIABETES MELLITUS
     Dosage: UNK
     Route: 058
     Dates: start: 1998
  4. NOVORAPID [Concomitant]
     Indication: PRODUCT USED FOR UNKNOWN INDICATION
     Dosage: UNK, UNKNOWN
     Route: 065

REACTIONS (7)
  - Retinal detachment [Recovered/Resolved]
  - Ovarian cyst ruptured [Unknown]
  - Renal failure chronic [Not Recovered/Not Resolved]
  - Cataract [Recovered/Resolved]
  - Blood creatinine abnormal [Unknown]
  - Haemoglobin decreased [Unknown]
  - Blood calcium decreased [Unknown]
